FAERS Safety Report 5865625-5 (Version None)
Quarter: 2008Q3

REPORT INFORMATION
  Report Type: 
  Country: None (occurrence: None)
  Receive Date: 20080829
  Receipt Date: 20080821
  Transmission Date: 20090109
  Serious: Yes (Death)
  Sender: FDA-Public Use
  Company Number: JP-ABBOTT-08P-087-0455602-00

PATIENT
  Age: 52 Year
  Sex: Male

DRUGS (3)
  1. LEUPROLIDE ACETATE [Suspect]
     Indication: PROSTATE CANCER STAGE IV
     Route: 058
     Dates: start: 20060821, end: 20061113
  2. BICALUTAMIDE [Concomitant]
     Indication: PROSTATE CANCER STAGE IV
     Route: 048
     Dates: end: 20060925
  3. FLUTAMIDE [Concomitant]
     Indication: PROSTATE CANCER STAGE IV
     Route: 048
     Dates: start: 20061023

REACTIONS (3)
  - FACE OEDEMA [None]
  - PROSTATE CANCER STAGE IV [None]
  - STOMACH DISCOMFORT [None]
